FAERS Safety Report 25567305 (Version 1)
Quarter: 2025Q3

REPORT INFORMATION
  Report Type: Spontaneous
  Country: CA (occurrence: None)
  Receive Date: 20250716
  Receipt Date: 20250716
  Transmission Date: 20251020
  Serious: No
  Sender: FDA-CTU
  Company Number: None

PATIENT
  Age: 63 Year
  Sex: Female
  Weight: 55.8 kg

DRUGS (3)
  1. DULOXETINE [Suspect]
     Active Substance: DULOXETINE
     Indication: Pain
     Route: 048
     Dates: start: 20250129, end: 20250427
  2. ESTRADIOL\NORETHINDRONE ACETATE [Concomitant]
     Active Substance: ESTRADIOL\NORETHINDRONE ACETATE
  3. ESTROGEL [Concomitant]
     Active Substance: ESTRADIOL

REACTIONS (8)
  - Dyspepsia [None]
  - Hyperhidrosis [None]
  - Feeling hot [None]
  - Sleep disorder [None]
  - Therapy interrupted [None]
  - Headache [None]
  - Tinnitus [None]
  - Electric shock sensation [None]

NARRATIVE: CASE EVENT DATE: 20250429
